FAERS Safety Report 4781610-9 (Version None)
Quarter: 2005Q3

REPORT INFORMATION
  Report Type: 
  Country: None (occurrence: None)
  Receive Date: 20050927
  Receipt Date: 20050915
  Transmission Date: 20060218
  Serious: Yes (Other)
  Sender: FDA-Public Use
  Company Number: 2005129692

PATIENT
  Age: 70 Year
  Sex: Female

DRUGS (1)
  1. ATARAX [Suspect]
     Indication: INSOMNIA
     Dosage: 25 MG (1 IN 1 D), ORAL
     Route: 048

REACTIONS (3)
  - CATARACT [None]
  - SOMNOLENCE [None]
  - VISUAL DISTURBANCE [None]
